FAERS Safety Report 8618138-1 (Version None)
Quarter: 2012Q3

REPORT INFORMATION
  Report Type: 
  Country: None (occurrence: None)
  Receive Date: 20120824
  Receipt Date: 20110913
  Transmission Date: 20120928
  Serious: Yes (Hospitalization)
  Sender: FDA-Public Use
  Company Number: US-ASTRAZENECA-2011SE55225

PATIENT
  Age: 67 Year
  Sex: Female

DRUGS (2)
  1. SYMBICORT [Suspect]
     Dosage: UNKNOWN
     Route: 055
  2. FLUTICASONE PROPIONATE [Concomitant]

REACTIONS (4)
  - DRUG INEFFECTIVE [None]
  - BRONCHITIS [None]
  - OXYGEN SATURATION DECREASED [None]
  - FEELING ABNORMAL [None]
